FAERS Safety Report 4688951-4 (Version None)
Quarter: 2005Q2

REPORT INFORMATION
  Report Type: 
  Country: None (occurrence: None)
  Receive Date: 20050613
  Receipt Date: 20050531
  Transmission Date: 20051028
  Serious: Yes (Hospitalization)
  Sender: FDA-Public Use
  Company Number: US-MERCK-0505USA03514

PATIENT
  Age: 75 Year
  Sex: Male

DRUGS (8)
  1. KETEK [Suspect]
     Indication: PHARYNGITIS
     Route: 065
     Dates: start: 20050330
  2. ZOCOR [Suspect]
     Route: 048
     Dates: end: 20050408
  3. HEPARIN [Concomitant]
     Route: 065
  4. LOVENOX [Concomitant]
     Route: 065
  5. ASPIRIN [Concomitant]
     Route: 065
  6. ZANTAC [Concomitant]
     Route: 065
  7. NORVASC [Concomitant]
     Route: 065
     Dates: end: 20050408
  8. KETEK [Suspect]
     Indication: UPPER RESPIRATORY TRACT INFECTION
     Route: 065
     Dates: start: 20050330

REACTIONS (8)
  - CEREBRAL ARTERY OCCLUSION [None]
  - CEREBRAL INFARCTION [None]
  - COUGH [None]
  - HAEMATOMA [None]
  - RENAL FAILURE CHRONIC [None]
  - RHABDOMYOLYSIS [None]
  - UPPER RESPIRATORY TRACT INFECTION [None]
  - VIRAL INFECTION [None]
